FAERS Safety Report 26185718 (Version 1)
Quarter: 2025Q4

REPORT INFORMATION
  Report Type: Spontaneous
  Country: US (occurrence: None)
  Receive Date: 20251219
  Receipt Date: 20251219
  Transmission Date: 20260118
  Serious: Yes (unspecified)
  Sender: FDA-CTU
  Company Number: None

PATIENT
  Age: 54 Year
  Sex: Female
  Weight: 98 kg

DRUGS (1)
  1. DIPHENHYDRAMINE [Suspect]
     Active Substance: DIPHENHYDRAMINE
     Dosage: FREQUENCY : AS NEEDED;
     Route: 040

REACTIONS (4)
  - Chest pain [None]
  - Infusion related reaction [None]
  - Unresponsive to stimuli [None]
  - Pupil fixed [None]

NARRATIVE: CASE EVENT DATE: 20251203
